FAERS Safety Report 20853428 (Version 1)
Quarter: 2022Q2

REPORT INFORMATION
  Report Type: Spontaneous
  Country: FR (occurrence: FR)
  Receive Date: 20220520
  Receipt Date: 20220520
  Transmission Date: 20220720
  Serious: Yes (Hospitalization)
  Sender: FDA-Public Use
  Company Number: None

PATIENT
  Age: 49 Year
  Sex: Male

DRUGS (5)
  1. ALPRAZOLAM [Suspect]
     Active Substance: ALPRAZOLAM
     Indication: Product used for unknown indication
     Dosage: 0.5 MILLIGRAM, (3 TO 6/TABLET)
     Route: 048
  2. COCAINE [Suspect]
     Active Substance: COCAINE
     Indication: Product used for unknown indication
     Dosage: UNK, OCCASIONAL
     Route: 065
  3. HEROIN [Suspect]
     Active Substance: DIAMORPHINE
     Indication: Product used for unknown indication
     Dosage: UNK, 1 TO 2 G/DAY
     Route: 045
     Dates: start: 2015
  4. LORMETAZEPAM [Suspect]
     Active Substance: LORMETAZEPAM
     Indication: Product used for unknown indication
     Dosage: UNK, NOT KNOWN
     Route: 065
  5. TOBACCO LEAF [Suspect]
     Active Substance: TOBACCO LEAF
     Indication: Product used for unknown indication
     Dosage: UNK, 10 TO 15 ROLLED CIGARETTES/DAY
     Route: 055

REACTIONS (3)
  - Disturbance in attention [Recovering/Resolving]
  - Withdrawal syndrome [Recovered/Resolved]
  - Drug abuse [Not Recovered/Not Resolved]

NARRATIVE: CASE EVENT DATE: 20210601
